FAERS Safety Report 6270794-1 (Version None)
Quarter: 2009Q3

REPORT INFORMATION
  Report Type: 
  Country: None (occurrence: None)
  Receive Date: 20090716
  Receipt Date: 20090706
  Transmission Date: 20100115
  Serious: Yes (Life-Threatening, Hospitalization, Other)
  Sender: FDA-Public Use
  Company Number: CA-WYE-H09977009

PATIENT
  Age: 54 Year
  Sex: Male

DRUGS (3)
  1. PANTOZOL [Suspect]
     Indication: PEPTIC ULCER
     Route: 042
     Dates: start: 20080313, end: 20080314
  2. PANTOZOL [Suspect]
     Route: 042
     Dates: start: 20080316, end: 20080317
  3. LANSOPRAZOLE [Suspect]
     Route: 048
     Dates: start: 20080315, end: 20080317

REACTIONS (6)
  - ADRENAL HAEMORRHAGE [None]
  - CELLULITIS [None]
  - INJECTION SITE ERYTHEMA [None]
  - INJECTION SITE SWELLING [None]
  - SCLERAL HAEMORRHAGE [None]
  - SEPTIC SHOCK [None]
